FAERS Safety Report 14203052 (Version 1)
Quarter: 2017Q4

REPORT INFORMATION
  Report Type: Report from Study
  Country: CA (occurrence: CA)
  Receive Date: 20171120
  Receipt Date: 20171120
  Transmission Date: 20180321
  Serious: Yes (Other)
  Sender: FDA-Public Use
  Company Number: CA-UCBSA-2017046091

PATIENT
  Age: 52 Year
  Sex: Male
  Weight: 111 kg

DRUGS (4)
  1. METFORMIN [Concomitant]
     Active Substance: METFORMIN HYDROCHLORIDE
     Indication: TYPE 2 DIABETES MELLITUS
     Dosage: 1000 MG, 2X/DAY (BID)
     Route: 048
     Dates: start: 20111108
  2. FENOFIBRATE. [Concomitant]
     Active Substance: FENOFIBRATE
     Indication: HYPOLIPIDAEMIA
     Dosage: 200 MG, ONCE DAILY (QD)
     Route: 048
     Dates: start: 20090711
  3. RAMIPRIL. [Concomitant]
     Active Substance: RAMIPRIL
     Indication: HYPERTENSION
     Dosage: 5 MG, ONCE DAILY (QD)
     Route: 048
     Dates: start: 20111108
  4. CERTOLIZUMAB PEGOL [Suspect]
     Active Substance: CERTOLIZUMAB PEGOL
     Indication: PSORIASIS
     Dosage: 200 MG, EV 2 WEEKS(QOW)
     Route: 058
     Dates: start: 20171013, end: 20171024

REACTIONS (1)
  - Throat cancer [Recovering/Resolving]

NARRATIVE: CASE EVENT DATE: 20171101
